FAERS Safety Report 8255718-X (Version None)
Quarter: 2012Q2

REPORT INFORMATION
  Report Type: 
  Country: None (occurrence: None)
  Receive Date: 20120403
  Receipt Date: 20120403
  Transmission Date: 20120825
  Serious: Yes (Other)
  Sender: FDA-Public Use
  Company Number: None

PATIENT
  Age: 58 Year
  Sex: Female
  Weight: 56.699 kg

DRUGS (1)
  1. ACTONEL [Suspect]
     Indication: BONE DENSITY ABNORMAL
     Dates: start: 20060918, end: 20090418

REACTIONS (2)
  - OSTEOARTHRITIS [None]
  - PAIN IN JAW [None]
